FAERS Safety Report 8083673-4 (Version None)
Quarter: 2012Q1

REPORT INFORMATION
  Report Type: 
  Country: None (occurrence: None)
  Receive Date: 20120127
  Receipt Date: 20110110
  Transmission Date: 20120608
  Serious: No
  Sender: FDA-Public Use
  Company Number: US-ABBOTT-11P-163-0696900-00

PATIENT
  Age: 45 Year
  Sex: Female
  Weight: 99.88 kg

DRUGS (2)
  1. BIAXIN [Suspect]
     Indication: SINUSITIS
     Dates: start: 20110104, end: 20110107
  2. HUMIRA [Suspect]
     Indication: CROHN'S DISEASE
     Dates: start: 20070101

REACTIONS (6)
  - SINUS CONGESTION [None]
  - FATIGUE [None]
  - EAR INFECTION [None]
  - DRUG INEFFECTIVE [None]
  - CROHN'S DISEASE [None]
  - SINUSITIS [None]
